FAERS Safety Report 5465800-8 (Version None)
Quarter: 2007Q3

REPORT INFORMATION
  Report Type: 
  Country: None (occurrence: None)
  Receive Date: 20070924
  Receipt Date: 20070921
  Transmission Date: 20080115
  Serious: Yes (Other)
  Sender: FDA-Public Use
  Company Number: FR-BRISTOL-MYERS SQUIBB COMPANY-13911110

PATIENT
  Age: 68 Year
  Sex: Male

DRUGS (4)
  1. CYCLOPHOSPHAMIDE [Suspect]
     Dosage: D1-3
     Dates: start: 20030901, end: 20040201
  2. FLUDARABINE PHOSPHATE [Suspect]
     Indication: CHRONIC LYMPHOCYTIC LEUKAEMIA
     Dosage: D1-3, RECEIVED FIVE COURSES OF THE DRUG.
     Route: 048
     Dates: start: 20030901, end: 20040201
  3. CAMPATH [Suspect]
     Dosage: RECIEVED NINE WEEKLY INJECTIONS IN APR-2006.
     Route: 058
     Dates: start: 20060401
  4. IMMUNE GLOBULIN (HUMAN) [Suspect]
     Dates: start: 20060601

REACTIONS (4)
  - B-CELL LYMPHOMA [None]
  - HISTIOCYTOSIS HAEMATOPHAGIC [None]
  - LEUKAEMIA RECURRENT [None]
  - PARVOVIRUS INFECTION [None]
